FAERS Safety Report 10913222 (Version 1)
Quarter: 2015Q1

REPORT INFORMATION
  Report Type: Spontaneous
  Country: FR (occurrence: None)
  Receive Date: 20150310
  Receipt Date: 20150310
  Transmission Date: 20150721
  Serious: Yes (Other)
  Sender: FDA-Public Use
  Company Number: FR-LHC-2015027

PATIENT
  Age: 66 Year
  Sex: Female

DRUGS (1)
  1. OXYGEN (GENERIC) (OXYGEN) (GAS FOR INHALATION) (VERUM) [Suspect]
     Active Substance: OXYGEN
     Indication: SURGERY
     Route: 055

REACTIONS (4)
  - Laryngeal stenosis [None]
  - Acute respiratory failure [None]
  - Tracheal stenosis [None]
  - Accident [None]
